FAERS Safety Report 9385318 (Version 3)
Quarter: 2014Q2

REPORT INFORMATION
  Report Type: Spontaneous
  Country: US (occurrence: US)
  Receive Date: 20130705
  Receipt Date: 20140515
  Transmission Date: 20141212
  Serious: Yes (Death, Hospitalization)
  Sender: FDA-Public Use
  Company Number: US-GLAXOSMITHKLINE-A1029783A

PATIENT
  Age: 88 Year
  Sex: Male

DRUGS (2)
  1. ROSIGLITAZONE MALEATE [Suspect]
     Indication: DIABETES MELLITUS
     Dosage: 4MG PER DAY
     Route: 048
     Dates: start: 200402, end: 200507
  2. AVANDIA [Suspect]
     Indication: DIABETES MELLITUS
     Dosage: 4MG TWICE PER DAY
     Route: 048
     Dates: start: 200602, end: 200703

REACTIONS (5)
  - Acute myocardial infarction [Fatal]
  - Atrial fibrillation [Unknown]
  - Cardiac failure congestive [Unknown]
  - Coronary artery disease [Unknown]
  - Arteriosclerosis [Unknown]
